FAERS Safety Report 6685871-0 (Version None)
Quarter: 2010Q2

REPORT INFORMATION
  Report Type: 
  Country: None (occurrence: None)
  Receive Date: 20100415
  Receipt Date: 20100415
  Transmission Date: 20101027
  Serious: No
  Sender: FDA-Public Use
  Company Number: None

PATIENT
  Age: 79 Year
  Sex: Male
  Weight: 60.68 kg

DRUGS (1)
  1. ASPIRIN [Suspect]
     Dosage: 325 MG EVERY DAY PO
     Route: 048
     Dates: start: 20091024, end: 20091101

REACTIONS (1)
  - GASTROINTESTINAL HAEMORRHAGE [None]
